FAERS Safety Report 9102172 (Version 2)
Quarter: 2013Q1

REPORT INFORMATION
  Report Type: Report from Study
  Country: CA (occurrence: CA)
  Receive Date: 20130218
  Receipt Date: 20130219
  Transmission Date: 20140127
  Serious: Yes (Death)
  Sender: FDA-Public Use
  Company Number: CA-ROCHE-1191940

PATIENT
  Age: 58 Year
  Sex: Male
  Weight: 46.3 kg

DRUGS (2)
  1. RITUXAN [Suspect]
     Indication: AUTOIMMUNE HAEMOLYTIC ANAEMIA
     Route: 042
     Dates: start: 20130205, end: 20130205
  2. PREDNISONE [Concomitant]
     Route: 065

REACTIONS (1)
  - Disease progression [Fatal]
